FAERS Safety Report 18696093 (Version 3)
Quarter: 2021Q1

REPORT INFORMATION
  Report Type: Other
  Country: US (occurrence: US)
  Receive Date: 20210104
  Receipt Date: 20210127
  Transmission Date: 20210419
  Serious: No
  Sender: FDA-Public Use
  Company Number: US-NOVA LABORATORIES LIMITED-2103869

PATIENT
  Age: 57 Year
  Sex: Male

DRUGS (2)
  1. INFLIXIMAB [Concomitant]
     Active Substance: INFLIXIMAB
  2. PURIXAN [Suspect]
     Active Substance: MERCAPTOPURINE
     Indication: LARGE INTESTINAL ULCER

REACTIONS (1)
  - Off label use [None]
